FAERS Safety Report 14478462 (Version 2)
Quarter: 2018Q1

REPORT INFORMATION
  Report Type: Spontaneous
  Country: FR (occurrence: FR)
  Receive Date: 20180202
  Receipt Date: 20180217
  Transmission Date: 20180509
  Serious: Yes (Death, Life-Threatening)
  Sender: FDA-Public Use
  Company Number: FR-AUROBINDO-AUR-APL-2018-003729

PATIENT
  Age: 85 Year
  Sex: Male
  Weight: 59 kg

DRUGS (5)
  1. AMOXICILINA/ACIDO CLAVULANICO SANDOZ [Suspect]
     Active Substance: AMOXICILLIN\CLAVULANATE POTASSIUM
     Indication: PNEUMONIA ASPIRATION
     Dosage: 3 G, UNK
     Route: 048
     Dates: start: 20171227, end: 20180105
  2. PANTOPRAZOLE ARROW GASTRO-RESISTANT TABLET 40MG [Suspect]
     Active Substance: PANTOPRAZOLE SODIUM
     Indication: PRODUCT USED FOR UNKNOWN INDICATION
     Dosage: 40 MG, UNK
     Route: 048
     Dates: start: 20171224, end: 20180104
  3. ASPEGIC [Suspect]
     Active Substance: ASPIRIN DL-LYSINE
     Indication: CEREBROVASCULAR ACCIDENT
     Dosage: 150 MG, UNK
     Route: 048
     Dates: start: 20171224, end: 20180105
  4. OFLOXACINE [Suspect]
     Active Substance: OFLOXACIN
     Indication: PNEUMONIA ASPIRATION
     Dosage: 400 MG, UNK
     Route: 065
     Dates: start: 20171227, end: 20180103
  5. TAHOR [Suspect]
     Active Substance: ATORVASTATIN CALCIUM
     Indication: PROPHYLAXIS
     Dosage: 10 MG, UNK
     Route: 048
     Dates: start: 20171229, end: 20180101

REACTIONS (1)
  - Hepatitis fulminant [Fatal]

NARRATIVE: CASE EVENT DATE: 20180104
